FAERS Safety Report 9725248 (Version 1)
Quarter: 2013Q4

REPORT INFORMATION
  Report Type: Spontaneous
  Country: US (occurrence: None)
  Receive Date: 20131129
  Receipt Date: 20131129
  Transmission Date: 20140711
  Serious: Yes (Hospitalization)
  Sender: FDA-Public Use
  Company Number: SYM-2013-13271

PATIENT
  Age: 44 Year
  Sex: Female

DRUGS (3)
  1. XENAZINE [Suspect]
     Indication: HUNTINGTON^S DISEASE
     Dosage: 12.5 MG, 4 IN 1 D, ORAL
     Route: 048
     Dates: start: 20120910
  2. TRAZODONE (TRAZODONE) (TRAZODONE) [Concomitant]
  3. CELEXA (CITALOPRAM HYDROBROMIDE) (CITALOPRAM HYDROBROMIDE) [Concomitant]

REACTIONS (4)
  - Drug dose omission [None]
  - Dyskinesia [None]
  - Depressed level of consciousness [None]
  - Thinking abnormal [None]
